FAERS Safety Report 19610690 (Version 1)
Quarter: 2021Q3

REPORT INFORMATION
  Report Type: Spontaneous
  Country: IT (occurrence: IT)
  Receive Date: 20210726
  Receipt Date: 20210726
  Transmission Date: 20211014
  Serious: Yes (Hospitalization)
  Sender: FDA-Public Use
  Company Number: IT-MYLANLABS-2021M1044692

PATIENT
  Age: 83 Year
  Sex: Female
  Weight: 50 kg

DRUGS (1)
  1. METHOTREXATE. [Suspect]
     Active Substance: METHOTREXATE
     Indication: ARTHRITIS
     Dosage: 2.5 MILLIGRAM, QD
     Dates: start: 20201019, end: 20201119

REACTIONS (9)
  - Nausea [Recovering/Resolving]
  - Anaemia [Recovering/Resolving]
  - Vomiting [Recovering/Resolving]
  - Transaminases increased [Recovering/Resolving]
  - Leukopenia [Recovering/Resolving]
  - Oesophagitis [Recovering/Resolving]
  - Stomatitis [Recovering/Resolving]
  - Haematemesis [Recovering/Resolving]
  - Wrong schedule [Recovering/Resolving]

NARRATIVE: CASE EVENT DATE: 20201119
